FAERS Safety Report 5752335-8 (Version None)
Quarter: 2008Q2

REPORT INFORMATION
  Report Type: 
  Country: None (occurrence: None)
  Receive Date: 20080529
  Receipt Date: 20080521
  Transmission Date: 20081010
  Serious: Yes (Life-Threatening)
  Sender: FDA-Public Use
  Company Number: GB-TEVA-171939ISR

PATIENT
  Sex: Male
  Weight: 3.1 kg

DRUGS (4)
  1. METOCLOPRAMIDE [Suspect]
     Indication: VOMITING
     Route: 064
     Dates: start: 20061208, end: 20061218
  2. CYCLIZINE [Suspect]
     Indication: VOMITING
     Route: 064
  3. OMEPRAZOLE [Suspect]
     Indication: VOMITING
     Route: 064
     Dates: start: 20070101
  4. PROCHLORPERAZINE [Suspect]
     Route: 064

REACTIONS (4)
  - ABDOMINAL DISTENSION [None]
  - LAPAROTOMY [None]
  - MECONIUM ABNORMAL [None]
  - NECROTISING ENTEROCOLITIS NEONATAL [None]
